FAERS Safety Report 8014597-6 (Version None)
Quarter: 2011Q4

REPORT INFORMATION
  Report Type: 
  Country: None (occurrence: None)
  Receive Date: 20111229
  Receipt Date: 20111208
  Transmission Date: 20120403
  Serious: Yes (Hospitalization)
  Sender: FDA-Public Use
  Company Number: FR-PFIZER INC-K201100757

PATIENT
  Age: 89 Year
  Sex: Female

DRUGS (6)
  1. RAMIPRIL [Suspect]
     Indication: HYPERTENSION
     Dosage: 5 MG, 1X/DAY
     Route: 048
     Dates: start: 19950101, end: 20100215
  2. LANOXIN [Suspect]
     Dosage: 1 DF, 1X/DAY
     Route: 048
     Dates: start: 20000101, end: 20100215
  3. CLONIDINE [Concomitant]
     Dosage: UNK
  4. COUMADIN [Concomitant]
     Dosage: UNK
  5. LASIX [Concomitant]
     Dosage: UNK MG, UNK
  6. LUVION [Suspect]
     Dosage: 0.5 DF, ALTERNATE DAY
     Route: 048
     Dates: start: 20050101, end: 20100215

REACTIONS (4)
  - HYPERKALAEMIA [None]
  - TOXICITY TO VARIOUS AGENTS [None]
  - HYPONATRAEMIA [None]
  - BRADYARRHYTHMIA [None]
